FAERS Safety Report 14174503 (Version 1)
Quarter: 2017Q4

REPORT INFORMATION
  Report Type: Not Available
  Country: None (occurrence: US)
  Receive Date: 20171109
  Receipt Date: 20171109
  Transmission Date: 20180321
  Serious: No
  Sender: FDA-Public Use
  Company Number: US-AKORN-69895

PATIENT
  Age: 94 Year
  Sex: Male

DRUGS (1)
  1. DORZOLAMIDE HCL TIMOLOL MALEATE OPHTHALMIC SOLUTION [Suspect]
     Active Substance: DORZOLAMIDE HYDROCHLORIDE\TIMOLOL MALEATE

REACTIONS (5)
  - Hair growth abnormal [Unknown]
  - Thrombosis [Unknown]
  - Faeces discoloured [Unknown]
  - Skin wrinkling [Unknown]
  - Rash [None]
